FAERS Safety Report 13470041 (Version 2)
Quarter: 2017Q3

REPORT INFORMATION
  Report Type: Spontaneous
  Country: US (occurrence: US)
  Receive Date: 20170423
  Receipt Date: 20170727
  Transmission Date: 20171127
  Serious: No
  Sender: FDA-Public Use
  Company Number: US-JNJFOC-20170415277

PATIENT
  Age: 67 Year
  Sex: Male
  Weight: 89.81 kg

DRUGS (5)
  1. PEPCID AC [Suspect]
     Active Substance: FAMOTIDINE
     Indication: GASTROOESOPHAGEAL REFLUX DISEASE
     Dosage: 1 TABLET (10MG), ONCE A DAY, 1 HOUR BEFORE DINNER FOR 7 DAYS STRAIGHT; APPROX 20-APR-2017
     Route: 048
     Dates: start: 201704, end: 201704
  2. PEPCID AC [Suspect]
     Active Substance: FAMOTIDINE
     Route: 048
  3. METFORMIN [Concomitant]
     Active Substance: METFORMIN HYDROCHLORIDE
     Indication: DIABETES MELLITUS
     Dosage: 500 MG 2 TABLETS PER DAY; 5-6 YEARS, SINCE APPROX 2008
     Route: 065
  4. ALLOPURINOL. [Concomitant]
     Active Substance: ALLOPURINOL
     Indication: PROPHYLAXIS
     Dosage: SINCE APPROX 2008
     Route: 065
  5. AREDS [Concomitant]
     Active Substance: MINERALS\VITAMINS
     Indication: VITAMIN SUPPLEMENTATION
     Dosage: SINCE APPROX 2007
     Route: 065

REACTIONS (7)
  - Discomfort [Recovered/Resolved]
  - Abdominal distension [Recovered/Resolved]
  - Nocturia [Recovered/Resolved]
  - Back pain [Recovered/Resolved]
  - Abdominal pain [Recovered/Resolved]
  - Muscle tightness [Recovered/Resolved]
  - Insomnia [Recovered/Resolved]

NARRATIVE: CASE EVENT DATE: 201704
